FAERS Safety Report 6317209-2 (Version None)
Quarter: 2009Q3

REPORT INFORMATION
  Report Type: 
  Country: None (occurrence: None)
  Receive Date: 20090820
  Receipt Date: 20090814
  Transmission Date: 20100115
  Serious: Yes (Other)
  Sender: FDA-Public Use
  Company Number: US-JNJCH-2009022137

PATIENT
  Age: 42 Year
  Sex: Male

DRUGS (1)
  1. NATURAL CITRUS LISTERINE [Suspect]
     Indication: DRUG ABUSE
     Dosage: TEXT:1 BOTTLE UNSPECIFIED
     Route: 048

REACTIONS (3)
  - ALCOHOL POISONING [None]
  - INCORRECT ROUTE OF DRUG ADMINISTRATION [None]
  - INTENTIONAL DRUG MISUSE [None]
